FAERS Safety Report 7193615-1 (Version None)
Quarter: 2010Q4

REPORT INFORMATION
  Report Type: 
  Country: None (occurrence: None)
  Receive Date: 20101223
  Receipt Date: 20101216
  Transmission Date: 20110411
  Serious: Yes (Hospitalization)
  Sender: FDA-Public Use
  Company Number: IT-TEVA-260632ISR

PATIENT
  Sex: Male

DRUGS (1)
  1. KETOPROFEN [Suspect]
     Indication: PHARYNGITIS
     Route: 048
     Dates: start: 20101129, end: 20101201

REACTIONS (1)
  - COLITIS ISCHAEMIC [None]
